FAERS Safety Report 11266211 (Version 1)
Quarter: 2015Q3

REPORT INFORMATION
  Report Type: Spontaneous
  Country: FR (occurrence: FR)
  Receive Date: 20150713
  Receipt Date: 20150713
  Transmission Date: 20151125
  Serious: Yes (Other)
  Sender: FDA-Public Use
  Company Number: FR-TEVA-575815ISR

PATIENT
  Age: 4 Year
  Sex: Female
  Weight: 13.6 kg

DRUGS (2)
  1. VINCRISTINE TEVA 1 MG/1ML [Suspect]
     Active Substance: VINCRISTINE
     Indication: NEPHROBLASTOMA
     Route: 042
     Dates: start: 201406, end: 20150327
  2. COSMEGEN [Suspect]
     Active Substance: DACTINOMYCIN
     Indication: NEPHROBLASTOMA
     Dosage: 600 MICROGRAM DAILY; ONE COURSE EVERY THREE WEEKS STARTING THE FIFTEEN DAY OF THE FIRST PART
     Route: 042
     Dates: start: 201406, end: 20150327

REACTIONS (1)
  - Peliosis hepatis [Recovered/Resolved]

NARRATIVE: CASE EVENT DATE: 20150409
